FAERS Safety Report 8878773 (Version 1)
Quarter: 2012Q4

REPORT INFORMATION
  Report Type: 
  Country: CA (occurrence: CA)
  Receive Date: 20121026
  Receipt Date: 20121026
  Transmission Date: 20130627
  Serious: Yes (Hospitalization)
  Sender: FDA-Public Use
  Company Number: PHHY2012CA096027

PATIENT
  Age: 89 Year
  Sex: Female

DRUGS (5)
  1. EXELON [Suspect]
     Dosage: 4.5 mg (1 every 1 day)
     Route: 048
  2. IPRATROPIUM [Concomitant]
     Dosage: UNK UKN, UNK
  3. RAMIPRIL [Concomitant]
     Dosage: UNK UKN, UNK
  4. RISEDRONATE SODIUM [Concomitant]
     Dosage: UNK UKN, UNK
  5. ROSUVASTATIN [Concomitant]
     Dosage: UNK UKN, UNK

REACTIONS (4)
  - Speech disorder [Recovered/Resolved]
  - Confusional state [Recovered/Resolved]
  - Diarrhoea [Recovered/Resolved]
  - Vomiting [Recovered/Resolved]
